FAERS Safety Report 24527201 (Version 1)
Quarter: 2024Q4

REPORT INFORMATION
  Report Type: Report from Study
  Country: US (occurrence: US)
  Receive Date: 20241021
  Receipt Date: 20241021
  Transmission Date: 20250114
  Serious: No
  Sender: ROCHE
  Company Number: US-ROCHE-3454054

PATIENT
  Age: 72 Year
  Sex: Female

DRUGS (10)
  1. COTELLIC [Suspect]
     Active Substance: COBIMETINIB
     Indication: Pancreatic carcinoma
     Dosage: TAKE 1 TABLET
     Route: 048
  2. TYLENOL [Concomitant]
     Active Substance: ACETAMINOPHEN
  3. BRAFTOVI [Concomitant]
     Active Substance: ENCORAFENIB
  4. NEURONTIN [Concomitant]
     Active Substance: GABAPENTIN
  5. GLUCOTROL [Concomitant]
     Active Substance: GLIPIZIDE
  6. XALATAN [Concomitant]
     Active Substance: LATANOPROST
  7. GLUCOPHAGE [Concomitant]
     Active Substance: METFORMIN HYDROCHLORIDE
  8. ZOFRAN [Concomitant]
     Active Substance: ONDANSETRON HYDROCHLORIDE
  9. PERCOCET [Concomitant]
     Active Substance: ACETAMINOPHEN\OXYCODONE HYDROCHLORIDE
  10. CREON [Concomitant]
     Active Substance: PANCRELIPASE AMYLASE\PANCRELIPASE LIPASE\PANCRELIPASE PROTEASE

REACTIONS (6)
  - Off label use [Unknown]
  - Dry eye [Unknown]
  - Glaucoma [Unknown]
  - Lacrimation increased [Unknown]
  - Eye pruritus [Unknown]
  - Reading disorder [Unknown]
